FAERS Safety Report 10240804 (Version 1)
Quarter: 2014Q2

REPORT INFORMATION
  Report Type: Spontaneous
  Country: US (occurrence: US)
  Receive Date: 20140617
  Receipt Date: 20140617
  Transmission Date: 20141212
  Serious: Yes (Hospitalization)
  Sender: FDA-Public Use
  Company Number: 2014SP003197

PATIENT
  Sex: Female

DRUGS (2)
  1. METHOTREXATE [Suspect]
     Indication: PRODUCT USED FOR UNKNOWN INDICATION
  2. PREDNISOLONE [Suspect]
     Indication: PRODUCT USED FOR UNKNOWN INDICATION

REACTIONS (6)
  - Peritonitis [Recovering/Resolving]
  - Apparent death [Recovering/Resolving]
  - Sepsis [Recovering/Resolving]
  - Diverticulitis [Recovering/Resolving]
  - Abscess [Recovering/Resolving]
  - Colon injury [Recovering/Resolving]
